FAERS Safety Report 12256294 (Version 1)
Quarter: 2016Q2

REPORT INFORMATION
  Report Type: Spontaneous
  Country: GB (occurrence: GB)
  Receive Date: 20160412
  Receipt Date: 20160412
  Transmission Date: 20160815
  Serious: Yes (Life-Threatening)
  Sender: FDA-Public Use
  Company Number: GB-TEVA-649495ACC

PATIENT
  Age: 86 Year
  Sex: Male
  Weight: 73.8 kg

DRUGS (11)
  1. TRANDOLAPRIL. [Suspect]
     Active Substance: TRANDOLAPRIL
     Route: 048
     Dates: start: 20160308
  2. TRANDOLAPRIL. [Suspect]
     Active Substance: TRANDOLAPRIL
     Dosage: 500 MICROGRAM DAILY;
  3. COMBODART [Concomitant]
     Active Substance: DUTASTERIDE\TAMSULOSIN
     Dosage: 1 DOSAGE FORMS DAILY;
     Route: 048
  4. WARFARIN SODIUM. [Concomitant]
     Active Substance: WARFARIN SODIUM
     Dosage: VARIABLE AS ADVISED
     Route: 048
  5. SPIRONOLACTONE. [Suspect]
     Active Substance: SPIRONOLACTONE
     Route: 048
     Dates: start: 20160308
  6. BUTRANS [Concomitant]
     Active Substance: BUPRENORPHINE
     Route: 061
  7. FUROSEMIDE. [Concomitant]
     Active Substance: FUROSEMIDE
     Dosage: 40 MILLIGRAM DAILY;
     Route: 048
  8. LINAGLIPTIN [Concomitant]
     Active Substance: LINAGLIPTIN
     Dosage: 5 MILLIGRAM DAILY;
     Route: 048
  9. GLICLAZIDE [Concomitant]
     Active Substance: GLICLAZIDE
     Dosage: 120 MILLIGRAM DAILY;
     Route: 048
  10. METFORMIN HYDROCHLORIDE. [Concomitant]
     Active Substance: METFORMIN HYDROCHLORIDE
     Dosage: 500 MILLIGRAM DAILY; AVOID IF NAUSEA, VOMITING OR INFECTION
     Route: 048
  11. INDORAMIN [Concomitant]
     Active Substance: INDORAMIN
     Dosage: 40 MILLIGRAM DAILY;

REACTIONS (2)
  - Hyperkalaemia [Unknown]
  - Glomerular filtration rate decreased [Unknown]

NARRATIVE: CASE EVENT DATE: 20160316
